FAERS Safety Report 5750338-0 (Version None)
Quarter: 2008Q2

REPORT INFORMATION
  Report Type: 
  Country: None (occurrence: None)
  Receive Date: 20080528
  Receipt Date: 20080521
  Transmission Date: 20081010
  Serious: Yes (Hospitalization)
  Sender: FDA-Public Use
  Company Number: FR-WYE-G01567708

PATIENT
  Sex: Female

DRUGS (1)
  1. EFFEXOR [Suspect]
     Indication: DEPRESSION
     Dosage: 100 MG TOTAL DAILY
     Route: 048
     Dates: start: 20070101, end: 20080501

REACTIONS (2)
  - ALLERGIC GRANULOMATOUS ANGIITIS [None]
  - TRANSAMINASES INCREASED [None]
